FAERS Safety Report 8417945-8 (Version None)
Quarter: 2012Q2

REPORT INFORMATION
  Report Type: 
  Country: None (occurrence: None)
  Receive Date: 20120601
  Receipt Date: 20120601
  Transmission Date: 20120825
  Serious: Yes (Hospitalization)
  Sender: FDA-Public Use
  Company Number: None

PATIENT
  Age: 69 Year
  Sex: Female
  Weight: 49.8957 kg

DRUGS (1)
  1. CLINDAMYCIN HCL [Suspect]
     Indication: ORAL SURGERY
     Dosage: 300 MG 3 TIMES A DAY 047 20 TABLETS
     Route: 048
     Dates: start: 20120316

REACTIONS (1)
  - DIARRHOEA [None]
